FAERS Safety Report 19002189 (Version 1)
Quarter: 2021Q1

REPORT INFORMATION
  Report Type: Spontaneous
  Country: IT (occurrence: IT)
  Receive Date: 20210312
  Receipt Date: 20210312
  Transmission Date: 20210420
  Serious: Yes (Other)
  Sender: FDA-Public Use
  Company Number: IT-ACCORD-219292

PATIENT
  Age: 74 Year
  Sex: Female
  Weight: 84 kg

DRUGS (7)
  1. SODIUM LEVOFOLINATE [Concomitant]
     Active Substance: LEVOLEUCOVORIN DISODIUM
     Indication: ADENOCARCINOMA OF COLON
     Route: 042
     Dates: start: 20210120, end: 20210120
  2. ZIRABEV [Concomitant]
     Active Substance: BEVACIZUMAB-BVZR
     Indication: ADENOCARCINOMA OF COLON
     Route: 042
     Dates: start: 20210120, end: 20210120
  3. OXALIPLATIN. [Suspect]
     Active Substance: OXALIPLATIN
     Indication: ADENOCARCINOMA OF COLON
     Route: 042
     Dates: start: 20210120, end: 20210120
  4. SOLDESAM [Concomitant]
     Active Substance: DEXAMETHASONE
     Route: 042
     Dates: start: 20210120, end: 20210120
  5. OMEPRAZOLE. [Concomitant]
     Active Substance: OMEPRAZOLE
     Route: 042
     Dates: start: 20210120, end: 20210120
  6. ONDANSETRON [Concomitant]
     Active Substance: ONDANSETRON
     Route: 042
     Dates: start: 20200120, end: 20200120
  7. TRIMETON [Concomitant]
     Active Substance: CHLORPHENIRAMINE MALEATE
     Route: 042
     Dates: start: 20210120, end: 20210120

REACTIONS (3)
  - Presyncope [Recovered/Resolved]
  - Malaise [Recovered/Resolved]
  - Feeling hot [Recovered/Resolved]

NARRATIVE: CASE EVENT DATE: 20210120
